FAERS Safety Report 14435687 (Version 1)
Quarter: 2018Q1

REPORT INFORMATION
  Report Type: Spontaneous
  Country: US (occurrence: US)
  Receive Date: 20180125
  Receipt Date: 20180125
  Transmission Date: 20180509
  Serious: No
  Sender: FDA-Public Use
  Company Number: US-UNITED THERAPEUTICS-UNT-2017-008409

PATIENT
  Sex: Female
  Weight: 124.26 kg

DRUGS (2)
  1. AMLODIPINE [Concomitant]
     Active Substance: AMLODIPINE BESYLATE
     Indication: PRODUCT USED FOR UNKNOWN INDICATION
  2. ORENITRAM [Suspect]
     Active Substance: TREPROSTINIL
     Indication: PULMONARY ARTERIAL HYPERTENSION
     Dosage: 0.75 MG, TID
     Route: 048
     Dates: start: 20170524

REACTIONS (8)
  - Anxiety [Unknown]
  - Crying [Unknown]
  - Drug titration error [Unknown]
  - Dyspnoea [Unknown]
  - Back pain [Unknown]
  - Insomnia [Unknown]
  - Pain in extremity [Unknown]
  - Headache [Unknown]
